FAERS Safety Report 16489593 (Version 1)
Quarter: 2019Q2

REPORT INFORMATION
  Report Type: Spontaneous
  Country: US (occurrence: US)
  Receive Date: 20190628
  Receipt Date: 20190628
  Transmission Date: 20190711
  Serious: No
  Sender: FDA-Public Use
  Company Number: US-PFIZER INC-2019276353

PATIENT
  Age: 79 Year
  Sex: Male

DRUGS (1)
  1. GABAPENTIN. [Suspect]
     Active Substance: GABAPENTIN
     Indication: PAIN
     Dosage: UNK, 1X/DAY

REACTIONS (3)
  - Product use in unapproved indication [Unknown]
  - Somnolence [Unknown]
  - Off label use [Unknown]
